FAERS Safety Report 8404908-1 (Version None)
Quarter: 2012Q2

REPORT INFORMATION
  Report Type: 
  Country: None (occurrence: None)
  Receive Date: 20120601
  Receipt Date: 20110829
  Transmission Date: 20120825
  Serious: Yes (Hospitalization)
  Sender: FDA-Public Use
  Company Number: US-ASTRAZENECA-2010SE39758

PATIENT
  Age: 66 Year
  Sex: Male

DRUGS (1)
  1. ATACAND HCT [Suspect]
     Dosage: 32/12.5 OD
     Route: 048

REACTIONS (4)
  - VOMITING [None]
  - ABDOMINAL PAIN [None]
  - PANCREATITIS [None]
  - GOUT [None]
